FAERS Safety Report 8801842 (Version 2)
Quarter: 2015Q1

REPORT INFORMATION
  Report Type: Report from Study
  Country: US (occurrence: US)
  Receive Date: 20120921
  Receipt Date: 20150304
  Transmission Date: 20150721
  Serious: Yes (Death)
  Sender: FDA-Public Use
  Company Number: US-ROCHE-1103742

PATIENT
  Age: 57 Year
  Sex: Female

DRUGS (41)
  1. AVASTIN [Suspect]
     Active Substance: BEVACIZUMAB
     Route: 042
     Dates: start: 20060823
  2. AVASTIN [Suspect]
     Active Substance: BEVACIZUMAB
     Route: 042
     Dates: start: 20070801
  3. 5-FLUOROURACIL [Concomitant]
     Active Substance: FLUOROURACIL
     Dosage: 01/AUG/2007, 08/AUG/2006, 23/AUG/2006, 05/JUL/2006, 21/JUN/2006, 07/JUN/2006, 24/MAY/2006, 10/MAY/20
     Route: 042
  4. PROCRIT [Concomitant]
     Active Substance: ERYTHROPOIETIN
     Dosage: 40 K, DOSE RECEIVED ON 23/AUG/2006
     Route: 058
  5. REMERON [Concomitant]
     Active Substance: MIRTAZAPINE
  6. OXYCODONE [Concomitant]
     Active Substance: OXYCODONE
  7. AMBIEN [Concomitant]
     Active Substance: ZOLPIDEM TARTRATE
     Route: 065
  8. GEMZAR [Concomitant]
     Active Substance: GEMCITABINE HYDROCHLORIDE
     Dosage: DOSE RECEIVED ON 14/NOV/2007,
     Route: 042
  9. COLACE [Concomitant]
     Active Substance: DOCUSATE SODIUM
     Dosage: AS NEEDED
     Route: 065
  10. NEULASTA [Concomitant]
     Active Substance: PEGFILGRASTIM
     Dosage: DOSE RECEIVED ON 23/JUN/2006, 26/MAY/2006
     Route: 058
  11. CALCIUM GLUCONATE. [Concomitant]
     Active Substance: CALCIUM GLUCONATE
     Dosage: 08/AUG/2006, 23/AUG/2006, 05/JUL/2006, 21/JUN/2006, 07/JUN/2006, 24/MAY/2006, 10/MAY/2006
     Route: 042
  12. ATIVAN [Concomitant]
     Active Substance: LORAZEPAM
     Route: 042
  13. MIRALAX [Concomitant]
     Active Substance: POLYETHYLENE GLYCOL 3350
     Dosage: AS NEEDED
     Route: 065
  14. XANAX [Concomitant]
     Active Substance: ALPRAZOLAM
     Route: 065
  15. AVASTIN [Suspect]
     Active Substance: BEVACIZUMAB
     Indication: HEPATIC CANCER
     Route: 042
     Dates: start: 20060510
  16. AVASTIN [Suspect]
     Active Substance: BEVACIZUMAB
     Route: 042
     Dates: start: 20060524
  17. AVASTIN [Suspect]
     Active Substance: BEVACIZUMAB
     Route: 042
     Dates: start: 20060705
  18. AVASTIN [Suspect]
     Active Substance: BEVACIZUMAB
     Route: 042
     Dates: start: 20071114
  19. NEUPOGEN [Concomitant]
     Active Substance: FILGRASTIM
     Dosage: DOSE RECEIVED ON 17/MAY/2006, 03/AUG/2007
     Route: 058
  20. GEMZAR [Concomitant]
     Active Substance: GEMCITABINE HYDROCHLORIDE
     Route: 042
  21. AVASTIN [Suspect]
     Active Substance: BEVACIZUMAB
     Route: 042
     Dates: start: 20060621
  22. MAGNESIUM SULPHATE [Concomitant]
     Active Substance: MAGNESIUM SULFATE
     Dosage: 08/AUG/2006, 23/AUG/2006, 05/JUL/2006, 21/JUN/2006, 07/JUN/2006, 24/MAY/2006, 10/MAY/2006
     Route: 042
  23. PHENERGAN [Concomitant]
     Active Substance: PROMETHAZINE HYDROCHLORIDE
     Dosage: 12/MAY/2006
     Route: 042
  24. OXYCONTIN [Concomitant]
     Active Substance: OXYCODONE HYDROCHLORIDE
     Route: 065
  25. ZOFRAN [Concomitant]
     Active Substance: ONDANSETRON HYDROCHLORIDE
     Dosage: AS NEEDED
     Route: 065
  26. ZOMETA [Concomitant]
     Active Substance: ZOLEDRONIC ACID
     Dosage: DOSE RECEIVED ON 14/NOV/2007, 01/AUG/2007, 08/AUG/2006, 05/JUL/2006, 07/JUN/2006, 10/MAY/2006
     Route: 042
  27. ARANESP [Concomitant]
     Active Substance: DARBEPOETIN ALFA
     Dosage: 21/JUN/2006, 28/JUN/2006, 01/AUG/2007, 14/NOV/2007
     Route: 058
  28. LEUCOVORIN [Concomitant]
     Active Substance: LEUCOVORIN
     Dosage: 10/MAY/2006, 24/MAY/2006, 07/JUN/2006, 21/JUN/2006, 05/JUL/2006, 23/AUG/2006, 08/AUG/2006, 01/AUG/20
     Route: 042
  29. 5-FLUOROURACIL [Concomitant]
     Active Substance: FLUOROURACIL
     Route: 042
  30. DEXAMETHASONE. [Concomitant]
     Active Substance: DEXAMETHASONE
  31. MILK OF MAGNESIA [Concomitant]
     Active Substance: MAGNESIUM HYDROXIDE
     Dosage: AS NEEDED
     Route: 065
  32. DECADRON [Concomitant]
     Active Substance: DEXAMETHASONE
     Dosage: 14/NOV/2007, 08/AUG/2006, 23/AUG/2006, 05/JUL/2006, 21/JUN/2006, 07/JUN/2006, 24/MAY/2006, 12/MAY/20
     Route: 042
  33. ATIVAN [Concomitant]
     Active Substance: LORAZEPAM
     Dosage: 12/MAY/2006
     Route: 042
  34. EMEND [Concomitant]
     Active Substance: APREPITANT
  35. AVASTIN [Suspect]
     Active Substance: BEVACIZUMAB
     Route: 042
     Dates: start: 20060607
  36. AVASTIN [Suspect]
     Active Substance: BEVACIZUMAB
     Route: 042
     Dates: start: 20060808
  37. ALOXI [Concomitant]
     Active Substance: PALONOSETRON HYDROCHLORIDE
     Dosage: DOSES RECEIVED ON 24/MAY/2006, 07/JUN/2006, 21/JUN/2006, 05/JUL/2006, 23/AUG/2006, 08/AUG/2006, 01/A
     Route: 042
  38. ARANESP [Concomitant]
     Active Substance: DARBEPOETIN ALFA
     Route: 058
  39. DECADRON [Concomitant]
     Active Substance: DEXAMETHASONE
     Route: 042
  40. OXALIPLATIN. [Concomitant]
     Active Substance: OXALIPLATIN
     Dosage: 10/MAY/2006, 24/MAY/2006, 07/JUN/2006, 21/JUN/2006, 05/JUL/2006, 23/AUG/2006, 08/AUG/2006
     Route: 042
  41. NEUMEGA [Concomitant]
     Active Substance: OPRELVEKIN
     Dosage: 09/AUG/2006
     Route: 058

REACTIONS (5)
  - Eye swelling [Unknown]
  - Fatigue [Unknown]
  - Neck pain [Unknown]
  - Death [Fatal]
  - Off label use [Unknown]

NARRATIVE: CASE EVENT DATE: 20080515
